FAERS Safety Report 9695247 (Version 6)
Quarter: 2020Q3

REPORT INFORMATION
  Report Type: Report from Study
  Country: US (occurrence: US)
  Receive Date: 20131119
  Receipt Date: 20141015
  Transmission Date: 20201104
  Serious: Yes (Other)
  Sender: FDA-Public Use
  Company Number: US-JNJFOC-20131110061

PATIENT
  Age: 10 Year
  Sex: Female
  Weight: 21 kg

DRUGS (40)
  1. TYLENOL [Concomitant]
     Active Substance: ACETAMINOPHEN
     Indication: PAIN
     Route: 065
  2. MELATONIN [Concomitant]
     Active Substance: MELATONIN
     Indication: SLEEP DISORDER THERAPY
     Route: 065
     Dates: start: 200711, end: 200907
  3. KEPPRA [Concomitant]
     Active Substance: LEVETIRACETAM
     Indication: SEIZURE
     Route: 065
     Dates: start: 20090616, end: 20090725
  4. METADATE [Concomitant]
     Active Substance: METHYLPHENIDATE HYDROCHLORIDE
     Indication: ATTENTION DEFICIT HYPERACTIVITY DISORDER
     Route: 065
     Dates: start: 20080925
  5. VERAPAMIL [Concomitant]
     Active Substance: VERAPAMIL HYDROCHLORIDE
     Indication: STENT PLACEMENT
     Route: 065
     Dates: start: 20110512
  6. STRATTERA [Concomitant]
     Active Substance: ATOMOXETINE HYDROCHLORIDE
     Indication: ATTENTION DEFICIT HYPERACTIVITY DISORDER
     Route: 065
     Dates: start: 20120324
  7. PRILOSEC [Concomitant]
     Active Substance: OMEPRAZOLE MAGNESIUM
     Indication: GASTROOESOPHAGEAL REFLUX DISEASE
     Route: 065
  8. VERAPAMIL [Concomitant]
     Active Substance: VERAPAMIL HYDROCHLORIDE
     Indication: HEADACHE
     Route: 065
     Dates: start: 20110512
  9. CARAFATE [Concomitant]
     Active Substance: SUCRALFATE
     Indication: STOMATITIS
     Dosage: 5?20 ML
     Route: 065
     Dates: start: 20120404
  10. BOTOX [Concomitant]
     Active Substance: ONABOTULINUMTOXINA
     Indication: GAIT DISTURBANCE
     Route: 065
     Dates: start: 20121212, end: 20121212
  11. DITROPAN [Concomitant]
     Active Substance: OXYBUTYNIN CHLORIDE
     Indication: BLADDER PAIN
     Route: 065
  12. BACLOFEN. [Concomitant]
     Active Substance: BACLOFEN
     Indication: URINARY RETENTION
     Route: 065
     Dates: start: 20070912
  13. CARNITINE [Concomitant]
     Active Substance: CARNITINE
     Indication: CARNITINE DEFICIENCY
     Route: 065
     Dates: start: 200711
  14. CISAPRIDE [Suspect]
     Active Substance: CISAPRIDE
     Route: 048
  15. VALIUM [Concomitant]
     Active Substance: DIAZEPAM
     Indication: MUSCLE SPASMS
     Route: 065
  16. DEPAKOTE [Concomitant]
     Active Substance: DIVALPROEX SODIUM
     Indication: SEIZURE
     Route: 065
     Dates: end: 20090615
  17. GENTAMICIN. [Concomitant]
     Active Substance: GENTAMICIN
     Indication: CYSTITIS
     Route: 065
     Dates: start: 20091215
  18. MULTIVITAMINS [Concomitant]
     Active Substance: VITAMINS
     Indication: VITAMIN SUPPLEMENTATION
     Route: 065
     Dates: start: 20110101
  19. LUPRON [Concomitant]
     Active Substance: LEUPROLIDE ACETATE
     Indication: PRECOCIOUS PUBERTY
     Route: 065
     Dates: start: 20121015
  20. SENOKOT [Concomitant]
     Active Substance: SENNOSIDES
     Indication: CONSTIPATION
     Route: 065
  21. GENTAMICIN. [Concomitant]
     Active Substance: GENTAMICIN
     Indication: CYSTITIS
     Dosage: 30 CC, THRICE DAILY, FLUSHED INTO BLADDER WITH CATHETER
     Route: 065
     Dates: start: 20050131, end: 20050206
  22. TRILEPTAL [Concomitant]
     Active Substance: OXCARBAZEPINE
     Indication: SEIZURE
     Route: 065
     Dates: start: 20090709
  23. ZYRTEC [Concomitant]
     Active Substance: CETIRIZINE HYDROCHLORIDE
     Indication: HYPERSENSITIVITY
     Route: 065
     Dates: start: 20101101
  24. COENZYME Q10 [Concomitant]
     Active Substance: DIETARY SUPPLEMENT\UBIDECARENONE
     Indication: MITOCHONDRIAL CYTOPATHY
     Route: 065
     Dates: start: 201208
  25. CARNITOR [Concomitant]
     Active Substance: LEVOCARNITINE
     Indication: CARNITINE
     Route: 065
     Dates: end: 200612
  26. SODIUM FLUORIDE. [Concomitant]
     Active Substance: SODIUM FLUORIDE
     Indication: MINERAL SUPPLEMENTATION
     Route: 065
  27. NASONEX [Concomitant]
     Active Substance: MOMETASONE FUROATE
     Indication: MULTIPLE ALLERGIES
     Dosage: 1 SPRAY ON NOSTRIL
     Route: 045
  28. SEPTRA [Concomitant]
     Active Substance: SULFAMETHOXAZOLE\TRIMETHOPRIM
     Indication: INFECTION PROPHYLAXIS
     Route: 048
     Dates: start: 20081104
  29. RIBOFLAVIN [Concomitant]
     Active Substance: RIBOFLAVIN
     Indication: MITOCHONDRIAL CYTOPATHY
     Route: 065
     Dates: start: 20121221
  30. SEPTRA [Concomitant]
     Active Substance: SULFAMETHOXAZOLE\TRIMETHOPRIM
     Indication: PROPHYLAXIS
     Route: 065
     Dates: end: 20071015
  31. CARDURA [Concomitant]
     Active Substance: DOXAZOSIN MESYLATE
     Indication: BLOOD PRESSURE MEASUREMENT
     Route: 065
     Dates: end: 20060106
  32. NEURONTIN [Concomitant]
     Active Substance: GABAPENTIN
     Indication: SEIZURE
     Route: 065
  33. DEBROX [Concomitant]
     Active Substance: CARBAMIDE PEROXIDE
     Indication: CERUMEN IMPACTION
     Dosage: ON BOTH EARS AS NECESSARY
     Route: 065
     Dates: start: 200812
  34. DIAMOX SEQUELS [Concomitant]
     Active Substance: ACETAZOLAMIDE
     Indication: IDIOPATHIC INTRACRANIAL HYPERTENSION
     Route: 065
     Dates: start: 20091202, end: 20110101
  35. CISAPRIDE [Suspect]
     Active Substance: CISAPRIDE
     Indication: GASTROOESOPHAGEAL REFLUX DISEASE
     Route: 048
     Dates: start: 20050205, end: 20130924
  36. MIRALAX [Concomitant]
     Active Substance: POLYETHYLENE GLYCOL 3350
     Indication: CONSTIPATION
     Dosage: 1 (1/4) TEA SPOON
     Route: 065
  37. POLY?VI?SOL [Concomitant]
     Indication: VITAMIN SUPPLEMENTATION
     Route: 065
     Dates: end: 20110101
  38. ADVAIR HFA [Concomitant]
     Active Substance: FLUTICASONE PROPIONATE\SALMETEROL XINAFOATE
     Indication: ASTHMA
     Dosage: 2 PULP
     Route: 065
     Dates: start: 20090109
  39. NAPROXEN. [Concomitant]
     Active Substance: NAPROXEN
     Indication: ARTHRITIS
     Route: 065
     Dates: start: 20090625
  40. ALBUTEROL. [Concomitant]
     Active Substance: ALBUTEROL
     Indication: ASTHMA
     Route: 065
     Dates: start: 20091101

REACTIONS (1)
  - Electrocardiogram QT prolonged [Recovered/Resolved]

NARRATIVE: CASE EVENT DATE: 20130917
